FAERS Safety Report 13952009 (Version 2)
Quarter: 2017Q3

REPORT INFORMATION
  Report Type: Spontaneous
  Country: GB (occurrence: GB)
  Receive Date: 20170910
  Receipt Date: 20170911
  Transmission Date: 20171128
  Serious: Yes (Other)
  Sender: FDA-Public Use
  Company Number: GB-MYLANLABS-2017M1055191

PATIENT
  Age: 77 Year
  Sex: Female
  Weight: 48 kg

DRUGS (7)
  1. DIAZEPAM. [Concomitant]
     Active Substance: DIAZEPAM
     Dosage: USE FOR SHORT PERIODS AT LOWEST DOSE THAT CAN C...
     Dates: start: 20170523, end: 20170620
  2. OMEPRAZOLE. [Concomitant]
     Active Substance: OMEPRAZOLE
     Dates: start: 20160418
  3. ZOPICLONE [Concomitant]
     Active Substance: ZOPICLONE
     Dosage: AT NIGHT.
     Dates: start: 20160418
  4. FELODIPINE. [Concomitant]
     Active Substance: FELODIPINE
     Dates: start: 20160624
  5. FERROUS FUMARATE [Concomitant]
     Active Substance: FERROUS FUMARATE
     Dosage: ADULT TREATMENT DOSE.
     Dates: start: 20170411
  6. CLOPIDOGREL [Suspect]
     Active Substance: CLOPIDOGREL BISULFATE
     Indication: PRODUCT USED FOR UNKNOWN INDICATION
     Dosage: UNK
  7. SIMVASTATIN. [Concomitant]
     Active Substance: SIMVASTATIN
     Dosage: AT NIGHT.
     Dates: start: 20160418

REACTIONS (2)
  - Pancytopenia [Recovering/Resolving]
  - Hypergammaglobulinaemia benign monoclonal [Unknown]
